FAERS Safety Report 26032584 (Version 1)
Quarter: 2025Q4

REPORT INFORMATION
  Report Type: Spontaneous
  Country: EU (occurrence: EU)
  Receive Date: 20251112
  Receipt Date: 20251112
  Transmission Date: 20260118
  Serious: Yes (Other)
  Sender: NOVARTIS
  Company Number: EU-ITM MEDICAL ISOTOPES GMBH-ITMAT2025000402

PATIENT
  Age: 52 Year
  Sex: Female

DRUGS (9)
  1. LUTETIUM CHLORIDE LU-177 [Suspect]
     Active Substance: LUTETIUM CHLORIDE LU-177
     Indication: Radioisotope therapy
     Dosage: 7.4 GBQ CYCLIC (CYCLE #1 OF AT LEAST 3 CYCLES OF [177LU]LU-DOTATATE AT 7.4 GBQ)
     Route: 065
  2. LUTETIUM CHLORIDE LU-177 [Suspect]
     Active Substance: LUTETIUM CHLORIDE LU-177
     Dosage: 7.4 GBQ CYCLIC (CYCLE #2 OF AT LEAST 3 CYCLES OF [177LU]LU-DOTATATE AT 7.4 GBQ)
     Route: 065
  3. LUTETIUM CHLORIDE LU-177 [Suspect]
     Active Substance: LUTETIUM CHLORIDE LU-177
     Dosage: 7.4 GBQ, CYCLIC (CYCLE #3 OF AT LEAST 3 CYCLES OF [177LU]LU-DOTATATE AT 7.4 GBQ)
     Route: 065
  4. LUTETIUM OXODOTREOTIDE LU-177 [Suspect]
     Active Substance: LUTETIUM OXODOTREOTIDE LU-177
     Indication: Gastrointestinal neuroendocrine tumour
     Dosage: 7.4 GBQ, CYCLIC (CYCLE #1 OF AT LEAST 3 CYCLES OF [177LU]LU-DOTATATE AT 7.4 GBQ)
     Route: 065
  5. LUTETIUM OXODOTREOTIDE LU-177 [Suspect]
     Active Substance: LUTETIUM OXODOTREOTIDE LU-177
     Dosage: 7.4 GBQ, CYCLIC (CYCLE #2 OF AT LEAST 3 CYCLES OF [177LU]LU-DOTATATE AT 7.4 GBQ)
     Route: 065
  6. LUTETIUM OXODOTREOTIDE LU-177 [Suspect]
     Active Substance: LUTETIUM OXODOTREOTIDE LU-177
     Dosage: 7.4 GBQ, CYCLIC (CYCLE #3 OF AT LEAST 3 CYCLES OF [177LU]LU-DOTATATE AT 7.4 GBQ)
     Route: 065
  7. TEMOZOLOMIDE [Suspect]
     Active Substance: TEMOZOLOMIDE
     Indication: Gastrointestinal neuroendocrine tumour
     Dosage: 200 MG/M2, CYCLIC CYCLE #1 OF AT LEAST 3 CYCLES OF TEMOZOLOMIDE 200MG/M2/5D
     Route: 065
  8. TEMOZOLOMIDE [Suspect]
     Active Substance: TEMOZOLOMIDE
     Dosage: 200 MG/M2, CYCLIC (CYCLE #2 OF AT LEAST 3 CYCLES OF TEMOZOLOMIDE 200MG/M2/5D)
     Route: 065
  9. TEMOZOLOMIDE [Suspect]
     Active Substance: TEMOZOLOMIDE
     Dosage: 200 MG/M2 CYCLIC (CYCLE #3 OF AT LEAST 3 CYCLES OF TEMOZOLOMIDE 200MG/M2/5D)
     Route: 065

REACTIONS (3)
  - Anaemia [Unknown]
  - Thrombocytopenia [Unknown]
  - Nephropathy toxic [Unknown]
